FAERS Safety Report 12962145 (Version 2)
Quarter: 2017Q1

REPORT INFORMATION
  Report Type: Spontaneous
  Country: FR (occurrence: FR)
  Receive Date: 20161121
  Receipt Date: 20170309
  Transmission Date: 20170428
  Serious: Yes (Death)
  Sender: FDA-Public Use
  Company Number: FR-SA-2016SA210768

PATIENT
  Age: 65 Year
  Sex: Female

DRUGS (1)
  1. TAXOTERE [Suspect]
     Active Substance: DOCETAXEL
     Indication: BREAST CANCER
     Route: 042
     Dates: start: 20160329, end: 20160329

REACTIONS (5)
  - Hyperthermia [Fatal]
  - Leukopenia [Fatal]
  - Neutropenia [Fatal]
  - Lymphopenia [Fatal]
  - Infection [Fatal]

NARRATIVE: CASE EVENT DATE: 20160405
